FAERS Safety Report 5670117-2 (Version None)
Quarter: 2008Q1

REPORT INFORMATION
  Report Type: 
  Country: None (occurrence: None)
  Receive Date: 20080312
  Receipt Date: 20080303
  Transmission Date: 20080703
  Serious: Yes (Hospitalization)
  Sender: FDA-Public Use
  Company Number: 083-C5013-07070649

PATIENT
  Age: 44 Year
  Sex: Female

DRUGS (1)
  1. CC-5013 (LENALIDOMIDE) [Suspect]
     Indication: MULTIPLE MYELOMA
     Dosage: 25 MG, DAILY, ORAL
     Route: 048
     Dates: start: 20070309, end: 20070523

REACTIONS (2)
  - HEART VALVE REPLACEMENT [None]
  - INFLUENZA LIKE ILLNESS [None]
